FAERS Safety Report 7432341-8 (Version None)
Quarter: 2011Q2

REPORT INFORMATION
  Report Type: 
  Country: None (occurrence: None)
  Receive Date: 20110415
  Receipt Date: 20110331
  Transmission Date: 20111010
  Serious: Yes (Other)
  Sender: FDA-Public Use
  Company Number: DSA_44848_2011

PATIENT
  Sex: Female

DRUGS (2)
  1. REBIF [Suspect]
     Indication: MULTIPLE SCLEROSIS
     Dosage: (44 MCG, THREE TIMES PER WEEK, SUBCUTANEOUS)
     Route: 058
     Dates: start: 20080314, end: 20101001
  2. BUPROPION HYDROCHLORIDE [Suspect]
     Indication: DEPRESSION
     Dosage: (DF ORAL)
     Route: 048
     Dates: end: 20100802

REACTIONS (6)
  - FALL [None]
  - INJECTION SITE HAEMATOMA [None]
  - CONTUSION [None]
  - CONVULSION [None]
  - AMNESIA [None]
  - MULTIPLE SCLEROSIS RELAPSE [None]
